FAERS Safety Report 8824892 (Version 1)
Quarter: 2012Q4

REPORT INFORMATION
  Report Type: 
  Country: US (occurrence: US)
  Receive Date: 20121004
  Receipt Date: 20121004
  Transmission Date: 20130627
  Serious: No
  Sender: FDA-Public Use
  Company Number: US-009507513-1210USA001665

PATIENT
  Age: 18 Year
  Sex: Female
  Weight: 74.38 kg

DRUGS (1)
  1. IMPLANON [Suspect]
     Indication: CONTRACEPTION
     Dosage: 1 standard dose
     Dates: start: 20120906, end: 20120906

REACTIONS (2)
  - Complication of device insertion [Unknown]
  - No adverse event [Unknown]
